FAERS Safety Report 23895761 (Version 2)
Quarter: 2024Q2

REPORT INFORMATION
  Report Type: Report from Study
  Country: US (occurrence: US)
  Receive Date: 20240524
  Receipt Date: 20240626
  Transmission Date: 20240716
  Serious: Yes (Hospitalization)
  Sender: FDA-Public Use
  Company Number: US-Eisai-EC-2024-163454

PATIENT
  Age: 71 Year
  Sex: Female

DRUGS (7)
  1. LENVIMA [Suspect]
     Active Substance: LENVATINIB
     Indication: Endometrial cancer
     Dosage: STOPPED: APR//2024 (MISSED ONE DOSE)
     Route: 048
     Dates: start: 20240404
  2. LENVIMA [Suspect]
     Active Substance: LENVATINIB
     Dosage: STOPPED: APR//2024
     Route: 048
     Dates: start: 202404
  3. LENVIMA [Suspect]
     Active Substance: LENVATINIB
     Route: 048
     Dates: start: 20240518
  4. KEYTRUDA [Concomitant]
     Active Substance: PEMBROLIZUMAB
     Dosage: DOSE AND FREQUENCY UNKNOWN
     Route: 042
     Dates: end: 202404
  5. KEYTRUDA [Concomitant]
     Active Substance: PEMBROLIZUMAB
     Dosage: DOSE AND FREQUENCY UNKNOWN
     Route: 042
     Dates: start: 2024
  6. ONDANSETRON [Concomitant]
     Active Substance: ONDANSETRON
  7. TYLENOL [Concomitant]
     Active Substance: ACETAMINOPHEN

REACTIONS (7)
  - Hallucination [Recovered/Resolved]
  - Tumour marker increased [Unknown]
  - Vomiting [Unknown]
  - Crying [Unknown]
  - Confusional state [Unknown]
  - Amnesia [Unknown]
  - Chest pain [Not Recovered/Not Resolved]

NARRATIVE: CASE EVENT DATE: 20240101
